FAERS Safety Report 19508658 (Version 1)
Quarter: 2021Q3

REPORT INFORMATION
  Report Type: Spontaneous
  Country: DE (occurrence: DE)
  Receive Date: 20210708
  Receipt Date: 20210708
  Transmission Date: 20211014
  Serious: Yes (Hospitalization, Other)
  Sender: FDA-Public Use
  Company Number: DE-PFIZER INC-2021770579

PATIENT
  Age: 75 Year
  Sex: Male
  Weight: 73 kg

DRUGS (21)
  1. PREDNISOLON [PREDNISOLONE] [Suspect]
     Active Substance: PREDNISOLONE
     Dosage: ACCORDING TO SCHEDULE
     Route: 042
  2. ACETYLSALICYLIC ACID [Concomitant]
     Active Substance: ASPIRIN
     Dosage: 100 MG, 1X/DAY
     Route: 048
  3. ACICLOVIR [Concomitant]
     Active Substance: ACYCLOVIR
     Dosage: 400 MG, 3X/DAY
     Route: 048
  4. DOXORUBICIN [Suspect]
     Active Substance: DOXORUBICIN
     Dosage: ACCORDING TO SCHEDULE
     Route: 042
  5. LIPEGFILGRASTIM [Suspect]
     Active Substance: LIPEGFILGRASTIM
     Dosage: ACCORDING TO SCHEDULE
     Route: 042
  6. FUROSEMID [Concomitant]
     Active Substance: FUROSEMIDE
     Dosage: 40 MG, 1X/DAY
     Route: 048
  7. SIMVASTATIN. [Concomitant]
     Active Substance: SIMVASTATIN
     Dosage: 20 MG, 1X/DAY
     Route: 048
  8. PLANTAGO AFRA [Concomitant]
     Active Substance: HERBALS
     Dosage: 3.25/5 G WHEN REQUIRED 3 TIMES 1 SACHET PER DAY
     Route: 048
  9. AMPHOTERICIN B. [Concomitant]
     Active Substance: AMPHOTERICIN B
     Dosage: 1 DF, 4X/DAY
     Route: 048
  10. ALLOPURINOL. [Concomitant]
     Active Substance: ALLOPURINOL
     Dosage: 300 MG, 1X/DAY
     Route: 048
  11. INSPIOLTO RESPIMAT [Concomitant]
     Active Substance: OLODATEROL HYDROCHLORIDE\TIOTROPIUM BROMIDE MONOHYDRATE
     Dosage: 2 DF, 1X/DAY
     Route: 055
  12. RITUXIMAB. [Suspect]
     Active Substance: RITUXIMAB
     Dosage: ACCORDING TO SCHEDULE
     Route: 042
  13. BORTEZOMIB. [Suspect]
     Active Substance: BORTEZOMIB
     Dosage: ACCORDING TO SCHEDULE
     Route: 042
  14. CYCLOPHOSPHAMID [Suspect]
     Active Substance: CYCLOPHOSPHAMIDE
     Dosage: ACCORDING TO SCHEDULE
     Route: 042
  15. RAMIPRIL. [Concomitant]
     Active Substance: RAMIPRIL
     Dosage: 5 MG, 2X/DAY
     Route: 048
  16. BISOPROLOL [Concomitant]
     Active Substance: BISOPROLOL
     Dosage: 5 MG, 1X/DAY
     Route: 048
  17. COTRIMOXAZOL AL [Concomitant]
     Active Substance: SULFAMETHOXAZOLE\TRIMETHOPRIM
     Dosage: 960 MG MONDAY, WEDNESDAY, FRIDAY
     Route: 048
  18. METAMIZOLE [Concomitant]
     Active Substance: METAMIZOLE
     Dosage: 500 MG, 4X/DAY
     Route: 048
  19. ZOPICLON [Concomitant]
     Active Substance: ZOPICLONE
     Dosage: 7.5 MG, 1X/DAY
     Route: 048
  20. PANTOPRAZOLE [Concomitant]
     Active Substance: PANTOPRAZOLE
     Dosage: 40 MG, 1X/DAY
     Route: 048
  21. MORPHINE [Concomitant]
     Active Substance: MORPHINE
     Dosage: 20 MG IN THE MORNING AND 8 DROPS WHEN REQUIRED
     Route: 048

REACTIONS (15)
  - Haemoglobin decreased [Unknown]
  - Herpes zoster [Unknown]
  - Headache [Unknown]
  - Blood creatinine increased [Unknown]
  - Gamma-glutamyltransferase increased [Unknown]
  - Thrombin time shortened [Unknown]
  - Haematocrit decreased [Unknown]
  - Pyrexia [Unknown]
  - General physical health deterioration [Unknown]
  - Prothrombin time shortened [Unknown]
  - C-reactive protein increased [Unknown]
  - Glomerular filtration rate decreased [Unknown]
  - Platelet count decreased [Unknown]
  - Fibrin D dimer increased [Unknown]
  - Red blood cell count decreased [Unknown]

NARRATIVE: CASE EVENT DATE: 20200704
